FAERS Safety Report 23248333 (Version 2)
Quarter: 2024Q1

REPORT INFORMATION
  Report Type: Report from Study
  Country: US (occurrence: US)
  Receive Date: 20231201
  Receipt Date: 20240107
  Transmission Date: 20240410
  Serious: Yes (Hospitalization, Other)
  Sender: FDA-Public Use
  Company Number: US-ABBVIE-5357315

PATIENT
  Sex: Male

DRUGS (7)
  1. VENCLEXTA [Suspect]
     Active Substance: VENETOCLAX
     Indication: Acute leukaemia
     Dosage: DAILY D15-21?FORM STRENGTH: 100 MILLIGRAM?100MG(1X100MG TAB) BY MOUTH DAILY WEEK 3
     Route: 048
  2. VENCLEXTA [Suspect]
     Active Substance: VENETOCLAX
     Indication: Acute leukaemia
     Dosage: DAILY D29-35?FORM STRENGTH: 400 MILLIGRAM
     Route: 048
  3. VENCLEXTA [Suspect]
     Active Substance: VENETOCLAX
     Indication: Acute leukaemia
     Dosage: TAKE ONE TABLET BY MOUTH DAILY DAYS 1-7?FORM STRENGTH: 20 MILLIGRAM?TAKE 20MG(2X10MG TABS) BY MOU...
     Route: 048
  4. VENCLEXTA [Suspect]
     Active Substance: VENETOCLAX
     Indication: Acute leukaemia
     Dosage: PO DAILY D8-14?FORM STRENGTH: 50 MILLIGRAM?50MG(1X50MG TAB) DAILY BY WEEK 2
     Route: 048
  5. VENCLEXTA [Suspect]
     Active Substance: VENETOCLAX
     Indication: Acute leukaemia
     Dosage: DAILY D22-28?FORM STRENGTH: 200 MILLIGRAM?200MG(2X100MG TABS) DAILY WEEK 4
     Route: 048
  6. RITUXAN [Suspect]
     Active Substance: RITUXIMAB
     Indication: B-cell prolymphocytic leukaemia
     Dosage: FORM OF ADMIN: VIAL?INFUSE 738MG INTRAVENOUSLY ONCE WEEKLY FOR 4 WEEK(S) AS DIRECTED
     Route: 042
  7. RITUXAN [Suspect]
     Active Substance: RITUXIMAB
     Indication: B-cell prolymphocytic leukaemia
     Dosage: FORM OF ADMIN: VIAL?INFUSE 738MG INTRAVENOUSLY ONCE WEEKLY FOR 4 WEEK(S) AS DIRECTED
     Route: 042

REACTIONS (9)
  - Amyotrophic lateral sclerosis [Unknown]
  - Off label use [Unknown]
  - Tumour lysis syndrome [Unknown]
  - Hospitalisation [Unknown]
  - White blood cell count abnormal [Recovered/Resolved]
  - Speech disorder [Unknown]
  - Red blood cell count decreased [Unknown]
  - Musculoskeletal disorder [Unknown]
  - Dysphagia [Unknown]
